FAERS Safety Report 7570140-7 (Version None)
Quarter: 2011Q2

REPORT INFORMATION
  Report Type: 
  Country: None (occurrence: None)
  Receive Date: 20110624
  Receipt Date: 20110613
  Transmission Date: 20111010
  Serious: Yes (Death, Other)
  Sender: FDA-Public Use
  Company Number: GB-BRISTOL-MYERS SQUIBB COMPANY-15849698

PATIENT

DRUGS (3)
  1. CAMPATH [Suspect]
     Indication: CARTILAGE-HAIR HYPOPLASIA
     Dosage: 1 DF= 0.3 TO 1.0 MG/KG
  2. TREOSULFAN [Suspect]
     Indication: CARTILAGE-HAIR HYPOPLASIA
     Dosage: 1 DF= 36G/M2 IN 3 DIVIDED DOSES ON 3 CONSECUTIVE DAYS
  3. CYCLOPHOSPHAMIDE [Suspect]
     Indication: CARTILAGE-HAIR HYPOPLASIA

REACTIONS (4)
  - RASH [None]
  - ADENOVIRUS INFECTION [None]
  - PULMONARY HAEMORRHAGE [None]
  - CYTOMEGALOVIRUS INFECTION [None]
